FAERS Safety Report 9029942 (Version 2)
Quarter: 2013Q2

REPORT INFORMATION
  Report Type: Spontaneous
  Country: US (occurrence: US)
  Receive Date: 20130125
  Receipt Date: 20130513
  Transmission Date: 20140414
  Serious: Yes (Hospitalization, Other)
  Sender: FDA-Public Use
  Company Number: US-BIOGENIDEC-2013BI006239

PATIENT
  Age: 37 Year
  Sex: Female

DRUGS (2)
  1. TYSABRI [Suspect]
     Indication: MULTIPLE SCLEROSIS
     Route: 042
     Dates: start: 20080916, end: 20100616
  2. TYSABRI [Suspect]
     Indication: MULTIPLE SCLEROSIS
     Route: 042
     Dates: start: 20111027

REACTIONS (7)
  - Pulmonary embolism [Recovered/Resolved]
  - Colon cancer [Recovered/Resolved]
  - Dyspnoea [Recovered/Resolved]
  - Pulmonary fibrosis [Recovered/Resolved]
  - Local swelling [Recovered/Resolved]
  - Fatigue [Recovered/Resolved]
  - Infection [Not Recovered/Not Resolved]
